FAERS Safety Report 9643304 (Version 3)
Quarter: 2014Q1

REPORT INFORMATION
  Report Type: Spontaneous
  Country: DK (occurrence: DK)
  Receive Date: 20131024
  Receipt Date: 20140113
  Transmission Date: 20141002
  Serious: Yes (Life-Threatening, Hospitalization, Other)
  Sender: FDA-Public Use
  Company Number: DK-ELI_LILLY_AND_COMPANY-DK201310004390

PATIENT
  Age: 63 Year
  Sex: Male

DRUGS (7)
  1. ZYPADHERA [Suspect]
     Indication: SCHIZOPHRENIA, PARANOID TYPE
     Dosage: 300 MG, 2/M
     Dates: start: 20120617
  2. ZYPREXA [Suspect]
     Dosage: 15 MG, QD
     Route: 065
     Dates: start: 201203
  3. DELEPSINE [Concomitant]
     Dosage: 1500 MG, QD
     Dates: start: 201310
  4. CORODIL [Concomitant]
     Dosage: 10 MG, QD
  5. CALCIUM [Concomitant]
  6. CRANBERRY [Concomitant]
  7. SODIUM CHLORIDE [Concomitant]
     Dosage: UNK, UNKNOWN
     Route: 065

REACTIONS (27)
  - Blood pressure increased [Recovered/Resolved]
  - Dysstasia [Recovered/Resolved]
  - Erythema [Recovered/Resolved]
  - Dysstasia [Recovered/Resolved]
  - Swelling [Recovered/Resolved]
  - Muscle spasms [Recovered/Resolved]
  - Swelling [Recovered/Resolved]
  - Muscle spasms [Recovered/Resolved]
  - Chills [Recovered/Resolved]
  - Body temperature increased [Recovered/Resolved]
  - Respiration abnormal [Recovered/Resolved]
  - Ataxia [Recovered/Resolved]
  - Confusional state [Recovered/Resolved]
  - Convulsion [Recovered/Resolved]
  - Disorientation [Recovered/Resolved]
  - Sedation [Recovered/Resolved]
  - Asthenia [Recovered/Resolved]
  - Blood pressure increased [Recovered/Resolved]
  - Unresponsive to stimuli [Recovered/Resolved]
  - Unresponsive to stimuli [Recovered/Resolved]
  - Hallucination [Unknown]
  - Body temperature increased [Recovered/Resolved]
  - Heart rate increased [Recovered/Resolved]
  - Injection site mass [Unknown]
  - Prescribed overdose [Unknown]
  - Injection site haemorrhage [Unknown]
  - Injection site haematoma [Unknown]
